FAERS Safety Report 9899050 (Version 2)
Quarter: 2014Q4

REPORT INFORMATION
  Report Type: Spontaneous
  Country: DK (occurrence: CA)
  Receive Date: 20140214
  Receipt Date: 20141014
  Transmission Date: 20150529
  Serious: Yes (Hospitalization, Other)
  Sender: FDA-Public Use
  Company Number: CA-FRI-1000054197

PATIENT
  Sex: Male
  Weight: 79.5 kg

DRUGS (6)
  1. BLINDED INVESTIGATIONAL MEDICINAL PRODUCT (IMP) NON-PARTNER [Suspect]
     Active Substance: INVESTIGATIONAL PRODUCT
     Dosage: 450 MG
     Route: 048
     Dates: start: 20130305, end: 20130313
  2. HYDROCHLOROTHIAZINE [Concomitant]
     Dosage: DAILY DOSE NOT REPORTED
  3. AVAPRO [Suspect]
     Active Substance: IRBESARTAN
     Indication: HYPERTENSION
     Dosage: 300 MG
     Dates: start: 2006
  4. ASPIRIN. [Concomitant]
     Active Substance: ASPIRIN
     Dosage: DAILY DOSE NOT REPORTED
  5. BLINDED INVESTIGATIONAL MEDICINAL PRODUCT (IMP) NON-PARTNER [Suspect]
     Active Substance: INVESTIGATIONAL PRODUCT
     Indication: CHRONIC MYELOID LEUKAEMIA
     Dosage: 600 MG
     Route: 048
     Dates: start: 20110825
  6. ESCITALOPRAM [Suspect]
     Active Substance: ESCITALOPRAM OXALATE
     Indication: DEPRESSION
     Dosage: 20 MG
     Dates: start: 20121115

REACTIONS (1)
  - Hepatitis acute [Recovered/Resolved]

NARRATIVE: CASE EVENT DATE: 20130313
